FAERS Safety Report 26044184 (Version 1)
Quarter: 2025Q4

REPORT INFORMATION
  Report Type: Spontaneous
  Country: US (occurrence: US)
  Receive Date: 20251114
  Receipt Date: 20251114
  Transmission Date: 20260117
  Serious: Yes (Other)
  Sender: AMGEN
  Company Number: US-AMGEN-USASL2025221852

PATIENT
  Age: 58 Year
  Sex: Female
  Weight: 59.239 kg

DRUGS (4)
  1. OTEZLA [Suspect]
     Active Substance: APREMILAST
     Indication: Psoriatic arthropathy
     Dosage: 30 MILLIGRAM, BID
     Route: 048
     Dates: start: 202205, end: 202302
  2. OTEZLA [Suspect]
     Active Substance: APREMILAST
     Dosage: 30 MILLIGRAM, BID
     Route: 048
     Dates: start: 202307
  3. INFLUENZA VIRUS VACCINE [Concomitant]
     Active Substance: INFLUENZA VIRUS VACCINE
     Dosage: UNK
     Route: 065
  4. COVID-19 vaccine [Concomitant]
     Dosage: UNK
     Route: 065

REACTIONS (10)
  - Meniscus removal [Recovered/Resolved]
  - Peripheral swelling [Recovered/Resolved]
  - Synovitis [Recovered/Resolved]
  - Diarrhoea [Recovered/Resolved]
  - Joint effusion [Recovered/Resolved]
  - Pain in extremity [Recovered/Resolved]
  - Tendon disorder [Recovered/Resolved]
  - Muscle oedema [Recovered/Resolved]
  - Arthralgia [Recovered/Resolved]
  - Intentional product misuse [Unknown]

NARRATIVE: CASE EVENT DATE: 20220504
